FAERS Safety Report 10409431 (Version 1)
Quarter: 2014Q3

REPORT INFORMATION
  Report Type: Spontaneous
  Country: US (occurrence: None)
  Receive Date: 20140825
  Receipt Date: 20140825
  Transmission Date: 20150326
  Serious: Yes (Life-Threatening, Hospitalization, Disabling, Other)
  Sender: FDA-Public Use
  Company Number: None

PATIENT
  Age: 25 Year
  Sex: Female
  Weight: 55.79 kg

DRUGS (1)
  1. LUPRON DEPOT [Suspect]
     Active Substance: LEUPROLIDE ACETATE
     Indication: ENDOMETRIOSIS
     Dosage: 1 SHOT, ONCE, INJECTED IN TO THE HIP
     Route: 030
     Dates: start: 20140424, end: 20140725

REACTIONS (11)
  - Dizziness [None]
  - Arthralgia [None]
  - Depression [None]
  - White blood cell count increased [None]
  - Syncope [None]
  - Blindness transient [None]
  - Amnesia [None]
  - Musculoskeletal chest pain [None]
  - Alopecia [None]
  - Pelvic pain [None]
  - Migraine [None]

NARRATIVE: CASE EVENT DATE: 20140503
